FAERS Safety Report 16256072 (Version 4)
Quarter: 2019Q3

REPORT INFORMATION
  Report Type: Spontaneous
  Country: US (occurrence: US)
  Receive Date: 20190430
  Receipt Date: 20190927
  Transmission Date: 20191004
  Serious: No
  Sender: FDA-Public Use
  Company Number: US-PFIZER INC-2019183539

PATIENT
  Age: 57 Year
  Sex: Female

DRUGS (12)
  1. DOCETAXEL. [Suspect]
     Active Substance: DOCETAXEL
     Indication: BREAST CANCER FEMALE
     Dosage: 145 MG, CYCLIC (EVERY 03 WEEKS)
     Route: 042
     Dates: start: 20160620
  2. BISOPROLOL /HCT [Concomitant]
     Dosage: UNK
     Dates: start: 1992
  3. DOCETAXEL SANDOZ [Suspect]
     Active Substance: DOCETAXEL
     Indication: BREAST CANCER FEMALE
     Dosage: 145 MG, CYCLIC (EVERY 03 WEEKS)
     Route: 042
     Dates: start: 20160620
  4. PARAPLATIN [Concomitant]
     Active Substance: CARBOPLATIN
     Indication: BREAST CANCER FEMALE
     Dosage: 675 MG, UNK
     Route: 042
  5. DOCETAXEL SANDOZ [Suspect]
     Active Substance: DOCETAXEL
     Dosage: 115 MG, CYCLIC (EVERY 03 WEEKS)
     Route: 042
     Dates: end: 20161003
  6. COREG [Concomitant]
     Active Substance: CARVEDILOL
     Dosage: UNK
     Dates: start: 1992
  7. METFORMIN [Concomitant]
     Active Substance: METFORMIN HYDROCHLORIDE
     Dosage: UNK
     Dates: start: 2007
  8. ZOCOR [Concomitant]
     Active Substance: SIMVASTATIN
     Dosage: UNK
     Dates: start: 1992
  9. DOCETAXEL. [Suspect]
     Active Substance: DOCETAXEL
     Dosage: 115 MG, CYCLIC (EVERY 03 WEEKS)
     Route: 042
     Dates: end: 20161003
  10. DOCETAXEL ACCORD [Suspect]
     Active Substance: DOCETAXEL
     Indication: BREAST CANCER FEMALE
     Dosage: 145 MG, CYCLIC (EVERY 03 WEEKS)
     Route: 042
     Dates: start: 20160620
  11. DOCETAXEL ACCORD [Suspect]
     Active Substance: DOCETAXEL
     Dosage: 115 MG, CYCLIC (EVERY 03 WEEKS)
     Route: 042
     Dates: end: 20161003
  12. TRASTUZUMAB. [Concomitant]
     Active Substance: TRASTUZUMAB
     Indication: BREAST CANCER FEMALE
     Dosage: 708 MG, UNK
     Route: 042

REACTIONS (5)
  - Hair colour changes [Unknown]
  - Hair disorder [Unknown]
  - Madarosis [Not Recovered/Not Resolved]
  - Hair texture abnormal [Unknown]
  - Alopecia [Not Recovered/Not Resolved]

NARRATIVE: CASE EVENT DATE: 20170503
